FAERS Safety Report 12400351 (Version 1)
Quarter: 2016Q2

REPORT INFORMATION
  Report Type: Spontaneous
  Country: US (occurrence: None)
  Receive Date: 20160524
  Receipt Date: 20160524
  Transmission Date: 20160815
  Serious: No
  Sender: FDA-Public Use
  Company Number: None

PATIENT
  Age: 30 Year
  Sex: Male
  Weight: 120.2 kg

DRUGS (4)
  1. TRAMADOL. [Concomitant]
     Active Substance: TRAMADOL
  2. CLORTHALIDONE [Concomitant]
  3. TRIAMCINOLONE [Concomitant]
     Active Substance: TRIAMCINOLONE
  4. OTEZLA [Suspect]
     Active Substance: APREMILAST
     Indication: PSORIASIS
     Route: 048
     Dates: start: 20160501, end: 20160509

REACTIONS (12)
  - Insomnia [None]
  - Major depression [None]
  - Thinking abnormal [None]
  - Irritability [None]
  - Impaired work ability [None]
  - Disturbance in attention [None]
  - Psychotic disorder [None]
  - Mood swings [None]
  - Impaired driving ability [None]
  - Depressed mood [None]
  - Depression [None]
  - Confusional state [None]

NARRATIVE: CASE EVENT DATE: 20160501
